FAERS Safety Report 17019890 (Version 1)
Quarter: 2019Q4

REPORT INFORMATION
  Report Type: Spontaneous
  Country: GB (occurrence: GB)
  Receive Date: 20191112
  Receipt Date: 20191112
  Transmission Date: 20200122
  Serious: No
  Sender: FDA-Public Use
  Company Number: GB-ALKEM LABORATORIES LIMITED-GB-ALKEM-2019-07180

PATIENT
  Age: 59 Year
  Sex: Female

DRUGS (7)
  1. NIMODIPINE. [Concomitant]
     Active Substance: NIMODIPINE
     Indication: PRODUCT USED FOR UNKNOWN INDICATION
     Dosage: 60 MILLIGRAM, QID
     Route: 065
     Dates: start: 20190226
  2. PREGABALIN. [Suspect]
     Active Substance: PREGABALIN
     Indication: PRODUCT USED FOR UNKNOWN INDICATION
     Dosage: 75 MILLIGRAM
     Route: 048
  3. NIMODIPINE. [Concomitant]
     Active Substance: NIMODIPINE
     Dosage: REDUCING TO 60MG THREE TIMES A DAY FOR 2/52 THEN 60MG TWICE A DAY UNTIL SEEN BY DR
     Route: 065
     Dates: start: 20190507, end: 20190524
  4. FYBOGEL [Concomitant]
     Active Substance: PLANTAGO OVATA SEED
     Indication: PRODUCT USED FOR UNKNOWN INDICATION
     Dosage: 3.5 GRAM, QD
     Route: 065
     Dates: start: 20190404
  5. ACCRETE D3 [Concomitant]
     Active Substance: CALCIUM CARBONATE\CHOLECALCIFEROL
     Indication: PRODUCT USED FOR UNKNOWN INDICATION
     Dosage: 2 DOSAGE FORM, QD
     Route: 065
     Dates: start: 20190404
  6. LACTULOSE. [Concomitant]
     Active Substance: LACTULOSE
     Indication: PRODUCT USED FOR UNKNOWN INDICATION
     Dosage: TAKE REGULARLY AND ADJUST ACCORDING TO RESPONSE. 3.1-3.7G/5ML
     Route: 065
     Dates: start: 20190404
  7. OTOMIZE [Concomitant]
     Active Substance: DEXAMETHASONE\NEOMYCIN SULFATE
     Indication: PRODUCT USED FOR UNKNOWN INDICATION
     Dosage: 3 DOSAGE FORM, QD
     Route: 065
     Dates: start: 20190226

REACTIONS (2)
  - Swelling face [Recovering/Resolving]
  - Peripheral swelling [Recovering/Resolving]
